FAERS Safety Report 16066998 (Version 1)
Quarter: 2019Q1

REPORT INFORMATION
  Report Type: Spontaneous
  Country: JP (occurrence: JP)
  Receive Date: 20190313
  Receipt Date: 20190313
  Transmission Date: 20190418
  Serious: Yes (Other)
  Sender: FDA-Public Use
  Company Number: JP-JNJFOC-20190137958

PATIENT
  Age: 68 Year
  Sex: Male

DRUGS (2)
  1. TREMFYA [Suspect]
     Active Substance: GUSELKUMAB
     Indication: PSORIASIS
     Route: 058
     Dates: end: 20190122
  2. STELARA [Suspect]
     Active Substance: USTEKINUMAB
     Indication: PSORIASIS
     Route: 058
     Dates: start: 201610

REACTIONS (1)
  - Cholangiocarcinoma [Unknown]

NARRATIVE: CASE EVENT DATE: 201901
